FAERS Safety Report 5940666-8 (Version None)
Quarter: 2008Q4

REPORT INFORMATION
  Report Type: 
  Country: None (occurrence: None)
  Receive Date: 20081103
  Receipt Date: 20081103
  Transmission Date: 20090506
  Serious: Yes (Other)
  Sender: FDA-Public Use
  Company Number: None

PATIENT
  Age: 35 Year
  Sex: Male
  Weight: 68.9467 kg

DRUGS (1)
  1. CYCLOBENZAPRINE HCL [Suspect]
     Dosage: 1 TABLET 8HRS/AS NEEDED
     Dates: start: 20080925, end: 20081005

REACTIONS (4)
  - CHEST PAIN [None]
  - DYSPNOEA [None]
  - GAIT DISTURBANCE [None]
  - JOINT SWELLING [None]
